FAERS Safety Report 8213517-9 (Version None)
Quarter: 2012Q1

REPORT INFORMATION
  Report Type: 
  Country: None (occurrence: None)
  Receive Date: 20120315
  Receipt Date: 20120306
  Transmission Date: 20120608
  Serious: Yes (Other)
  Sender: FDA-Public Use
  Company Number: US-GILEAD-2012-0052059

PATIENT
  Sex: Female

DRUGS (5)
  1. AMBRISENTAN [Suspect]
     Indication: PULMONARY ARTERIAL HYPERTENSION
     Dosage: 5 MG, QD
     Route: 048
     Dates: start: 20110420
  2. MAGNESIUM OXIDE [Concomitant]
     Indication: HYPOMAGNESAEMIA
     Dosage: 400MG TWICE PER DAY
     Route: 048
  3. TADALAFIL [Suspect]
     Indication: PULMONARY ARTERIAL HYPERTENSION
     Dosage: 40 MG, QD
     Route: 048
     Dates: start: 20110420
  4. FUROSEMIDE [Concomitant]
     Indication: HYPERVOLAEMIA
     Dosage: 80MG PER DAY
     Route: 048
  5. POTASSIUM [Concomitant]
     Indication: HYPOKALAEMIA
     Dosage: 40MEQ TWICE PER DAY
     Route: 048

REACTIONS (1)
  - SYNCOPE [None]
